FAERS Safety Report 15424533 (Version 1)
Quarter: 2018Q3

REPORT INFORMATION
  Report Type: Spontaneous
  Country: US (occurrence: US)
  Receive Date: 20180919
  Receipt Date: 20180919
  Transmission Date: 20181010
  Serious: Yes (Hospitalization)
  Sender: FDA-Public Use
  Company Number: None

PATIENT
  Age: 15 Year
  Sex: Female

DRUGS (12)
  1. POLYETH GLYC [Concomitant]
     Active Substance: POLYETHYLENE GLYCOLS
  2. KEPPRA LEVETIRACETA SOL [Concomitant]
  3. A?HYDROCORT [Concomitant]
     Active Substance: HYDROCORTISONE SODIUM SUCCINATE
  4. ONFI [Concomitant]
     Active Substance: CLOBAZAM
  5. TRICITRATES [Concomitant]
     Active Substance: CITRIC ACID MONOHYDRATE\POTASSIUM CITRATE\SODIUM CITRATE
  6. DIAZEPAM. [Concomitant]
     Active Substance: DIAZEPAM
  7. CLONZEP ODT [Concomitant]
  8. VIGABATRIN 500MG PWD [Suspect]
     Active Substance: VIGABATRIN
     Indication: LENNOX-GASTAUT SYNDROME
     Route: 048
     Dates: start: 20180129
  9. BUDESONIDE. [Concomitant]
     Active Substance: BUDESONIDE
  10. LEVOTHYROXIN [Concomitant]
     Active Substance: LEVOTHYROXINE
  11. VALPROIC ACID SOL [Concomitant]
  12. LEVOCARINITIN [Concomitant]

REACTIONS (1)
  - Sepsis [None]

NARRATIVE: CASE EVENT DATE: 20180822
